FAERS Safety Report 23878223 (Version 1)
Quarter: 2024Q2

REPORT INFORMATION
  Report Type: Spontaneous
  Country: PL (occurrence: PL)
  Receive Date: 20240521
  Receipt Date: 20240521
  Transmission Date: 20240716
  Serious: Yes (Death, Hospitalization, Other)
  Sender: FDA-Public Use
  Company Number: PL-MEDEXUS PHARMA, INC.-2024MED00210

PATIENT
  Age: 80 Year
  Sex: Female

DRUGS (1)
  1. METHOTREXATE [Suspect]
     Active Substance: METHOTREXATE
     Indication: Rheumatoid arthritis
     Dosage: PRESCRIBED DOSAGE WAS 5 TABLETS ONCE A WEEK (12.5 MG OF MTX IN TOTAL); ON THE DAY OF DISCHARGE AN EM

REACTIONS (8)
  - Respiratory failure [Fatal]
  - Gastrointestinal haemorrhage [Fatal]
  - Overdose [Fatal]
  - Pancytopenia [Unknown]
  - Stomatitis [Unknown]
  - Urinary tract infection [Unknown]
  - Pneumonia [Unknown]
  - Product administration error [Fatal]
